FAERS Safety Report 19470153 (Version 1)
Quarter: 2021Q2

REPORT INFORMATION
  Report Type: Spontaneous
  Country: US (occurrence: US)
  Receive Date: 20210628
  Receipt Date: 20210628
  Transmission Date: 20210717
  Serious: Yes (Other)
  Sender: FDA-Public Use
  Company Number: US-ADMA BIOLOGICS INC.-US-2021ADM000020

PATIENT
  Sex: Female

DRUGS (4)
  1. BIVIGAM [Suspect]
     Active Substance: HUMAN IMMUNOGLOBULIN G
     Dosage: 30 G, UNK
     Dates: start: 20210415
  2. BIVIGAM [Suspect]
     Active Substance: HUMAN IMMUNOGLOBULIN G
     Dosage: 30 G, UNK
     Dates: start: 20210506
  3. BIVIGAM [Suspect]
     Active Substance: HUMAN IMMUNOGLOBULIN G
     Dosage: 30 G, UNK
     Dates: start: 20210527
  4. BIVIGAM [Suspect]
     Active Substance: HUMAN IMMUNOGLOBULIN G
     Indication: IMMUNODEFICIENCY
     Dosage: 30 G, UNK
     Dates: start: 20210325

REACTIONS (1)
  - Croup infectious [Unknown]
